FAERS Safety Report 5638753-7 (Version None)
Quarter: 2008Q1

REPORT INFORMATION
  Report Type: 
  Country: None (occurrence: None)
  Receive Date: 20080226
  Receipt Date: 20080215
  Transmission Date: 20080703
  Serious: Yes (Other)
  Sender: FDA-Public Use
  Company Number: US-JNJFOC-20080204624

PATIENT
  Sex: Female
  Weight: 79.38 kg

DRUGS (6)
  1. DURAGESIC-100 [Suspect]
     Dosage: 1X 100 UG/HR PATCH PLUS 1X 25 UG/HR PATCH
     Route: 062
  2. DURAGESIC-100 [Suspect]
     Indication: PAIN
     Dosage: 1X 100 UG/HR PATCH PLUS 1X 25 UG/HR PATCH
     Route: 062
  3. FENTANYL TRANSDERMAL SYSTEM [Suspect]
     Indication: PAIN
     Dosage: 1X 100 UG/HR PATCH PLUS 1X 25 UG/HR PATCH
     Route: 062
  4. GLEEVEC [Concomitant]
     Indication: NEOPLASM MALIGNANT
     Route: 048
  5. ZOLOFT [Concomitant]
     Indication: ANXIETY
     Route: 048
  6. DICYCLOMINE [Concomitant]
     Indication: ABDOMINAL PAIN
     Route: 048

REACTIONS (2)
  - DRUG INEFFECTIVE [None]
  - HYPERTENSION [None]
